FAERS Safety Report 8480736-6 (Version None)
Quarter: 2012Q2

REPORT INFORMATION
  Report Type: 
  Country: None (occurrence: None)
  Receive Date: 20120626
  Receipt Date: 20120613
  Transmission Date: 20120825
  Serious: Yes (Other)
  Sender: FDA-Public Use
  Company Number: 2012SP032621

PATIENT
  Sex: Male

DRUGS (3)
  1. PEG-INTRON [Suspect]
     Indication: HEPATITIS C
     Dates: start: 20120415
  2. VICTRELIS [Suspect]
     Indication: HEPATITIS C
     Dates: start: 20120513
  3. RIBAVIRIN [Suspect]
     Indication: HEPATITIS C
     Dates: start: 20120415

REACTIONS (9)
  - HYPOTONIA [None]
  - IMPAIRED HEALING [None]
  - DIZZINESS [None]
  - CONTUSION [None]
  - DYSGEUSIA [None]
  - WHITE BLOOD CELL COUNT DECREASED [None]
  - WEIGHT DECREASED [None]
  - LACERATION [None]
  - INFLUENZA LIKE ILLNESS [None]
